FAERS Safety Report 11992101 (Version 1)
Quarter: 2016Q1

REPORT INFORMATION
  Report Type: Spontaneous
  Country: US (occurrence: US)
  Receive Date: 20160203
  Receipt Date: 20160203
  Transmission Date: 20160526
  Serious: No
  Sender: FDA-Public Use
  Company Number: US-JNJFOC-20160109253

PATIENT
  Age: 71 Year
  Sex: Female
  Weight: 55.34 kg

DRUGS (3)
  1. MOTRIN IB [Suspect]
     Active Substance: IBUPROFEN
     Indication: MOUTH SWELLING
     Dosage: ONE CAPLET EVERY 4-5 HOURS FOR THE PAST 3 MONTHS. SHE TOOK 4-5 CAPLETS AT TIME ON 11-JAN-2016
     Route: 048
     Dates: end: 20160111
  2. ALL OTHER THERAPEUTIC PRODUCTS [Concomitant]
     Active Substance: UNSPECIFIED INGREDIENT
     Indication: PRODUCT USED FOR UNKNOWN INDICATION
     Dosage: DAILY
     Route: 065
  3. MOTRIN IB [Suspect]
     Active Substance: IBUPROFEN
     Indication: FACIAL PAIN
     Dosage: ONE CAPLET EVERY 4-5 HOURS FOR THE PAST 3 MONTHS. SHE TOOK 4-5 CAPLETS AT TIME ON 11-JAN-2016
     Route: 048
     Dates: end: 20160111

REACTIONS (3)
  - Swelling [Unknown]
  - Off label use [Unknown]
  - Product use issue [Unknown]

NARRATIVE: CASE EVENT DATE: 20160111
